FAERS Safety Report 19420858 (Version 2)
Quarter: 2022Q2

REPORT INFORMATION
  Report Type: Report from Study
  Country: JP (occurrence: None)
  Receive Date: 20210615
  Receipt Date: 20220622
  Transmission Date: 20220721
  Serious: Yes (Other)
  Sender: FDA-Public Use
  Company Number: JP-MERCK HEALTHCARE KGAA-9229913

PATIENT
  Age: 71 Year
  Sex: Male
  Weight: 59 kg

DRUGS (10)
  1. BAVENCIO [Suspect]
     Active Substance: AVELUMAB
     Indication: Transitional cell carcinoma
     Dosage: THREE VIALS OF INTRAVENOUS INFUSION (568 MG)
     Route: 041
     Dates: start: 20210331
  2. BAVENCIO [Suspect]
     Active Substance: AVELUMAB
     Route: 041
     Dates: start: 20220316
  3. ACETAMINOPHEN [Concomitant]
     Active Substance: ACETAMINOPHEN
     Indication: Premedication
     Route: 048
     Dates: start: 20210331
  4. ACETAMINOPHEN [Concomitant]
     Active Substance: ACETAMINOPHEN
     Route: 048
     Dates: start: 20220316
  5. DIPHENHYDRAMINE [Concomitant]
     Active Substance: DIPHENHYDRAMINE
     Indication: Premedication
     Route: 048
     Dates: start: 20210331
  6. DIPHENHYDRAMINE [Concomitant]
     Active Substance: DIPHENHYDRAMINE
     Route: 048
     Dates: start: 20220316
  7. FAMOTIDINE [Concomitant]
     Active Substance: FAMOTIDINE
     Indication: Premedication
     Route: 048
     Dates: start: 20210312
  8. FAMOTIDINE [Concomitant]
     Active Substance: FAMOTIDINE
     Route: 048
     Dates: start: 20220316
  9. MEDROL [Concomitant]
     Active Substance: METHYLPREDNISOLONE
     Indication: Premedication
     Route: 048
     Dates: start: 20210312
  10. MEDROL [Concomitant]
     Active Substance: METHYLPREDNISOLONE
     Route: 048
     Dates: start: 20220316

REACTIONS (3)
  - Noninfective encephalitis [Recovered/Resolved]
  - Malaise [Recovered/Resolved]
  - Feeling cold [Recovering/Resolving]

NARRATIVE: CASE EVENT DATE: 20210331
